FAERS Safety Report 8344366-9 (Version None)
Quarter: 2012Q2

REPORT INFORMATION
  Report Type: 
  Country: None (occurrence: None)
  Receive Date: 20120508
  Receipt Date: 20120501
  Transmission Date: 20120825
  Serious: Yes (Hospitalization)
  Sender: FDA-Public Use
  Company Number: US-BAYER-2012-043622

PATIENT
  Age: 39 Year
  Sex: Female

DRUGS (4)
  1. LEXAPRO [Concomitant]
     Dosage: 10 MG, UNK
  2. YASMIN [Suspect]
  3. DROSPIRENONE AND ETHINYL ESTRADIOL [Suspect]
  4. ALBUTEROL [Concomitant]

REACTIONS (1)
  - PULMONARY EMBOLISM [None]
